FAERS Safety Report 7390175-7 (Version None)
Quarter: 2011Q2

REPORT INFORMATION
  Report Type: 
  Country: None (occurrence: None)
  Receive Date: 20110401
  Receipt Date: 20110328
  Transmission Date: 20111010
  Serious: Yes (Life-Threatening, Hospitalization, Other)
  Sender: FDA-Public Use
  Company Number: PHEH2004US08571

PATIENT

DRUGS (18)
  1. DIAZEPAM [Suspect]
  2. VALIUM [Concomitant]
  3. PROTONIX [Concomitant]
  4. PERCOCET [Concomitant]
  5. AMBIEN [Concomitant]
  6. AROMASIN [Concomitant]
  7. CLINDAMYCIN [Concomitant]
  8. ALBUTEROL [Concomitant]
  9. SEROQUEL [Suspect]
  10. MYLANTA [Concomitant]
     Indication: ABDOMINAL DISCOMFORT
  11. FLAGYL [Concomitant]
     Dosage: UNK
  12. ZOMETA [Suspect]
     Indication: BREAST CANCER METASTATIC
     Dates: start: 20020101, end: 20040501
  13. ACETAMINOPHEN [Concomitant]
     Indication: PAIN
     Dosage: 325 MG, UNK
  14. COGENTIN [Concomitant]
     Indication: DYSTONIA
     Dosage: 2 MG, UNK
     Route: 030
  15. CYMBALTA [Concomitant]
  16. DARVOCET-N 50 [Concomitant]
  17. KAOPECTATE [Concomitant]
     Indication: DIARRHOEA
  18. CELEBREX [Concomitant]

REACTIONS (48)
  - BIPOLAR DISORDER [None]
  - GANGRENE [None]
  - COMA [None]
  - TACHYCARDIA [None]
  - ASTHMA [None]
  - GENERALISED ANXIETY DISORDER [None]
  - SCOLIOSIS [None]
  - WEIGHT DECREASED [None]
  - DISTURBANCE IN SOCIAL BEHAVIOUR [None]
  - AGITATION [None]
  - BLOOD PRESSURE DECREASED [None]
  - RENAL CYST [None]
  - MAJOR DEPRESSION [None]
  - HYPOKALAEMIA [None]
  - HYPOAESTHESIA ORAL [None]
  - RENAL CANCER [None]
  - NEOPLASM MALIGNANT [None]
  - CHRONIC SINUSITIS [None]
  - ROAD TRAFFIC ACCIDENT [None]
  - BONE DISORDER [None]
  - ATELECTASIS [None]
  - LEFT VENTRICULAR HYPERTROPHY [None]
  - TRANSIENT ISCHAEMIC ATTACK [None]
  - OSTEOMYELITIS [None]
  - CONVULSION [None]
  - ABDOMINAL PAIN UPPER [None]
  - GASTROINTESTINAL DISORDER [None]
  - MOOD ALTERED [None]
  - ARTERIOSCLEROSIS CORONARY ARTERY [None]
  - METASTASES TO BONE [None]
  - URINARY TRACT INFECTION [None]
  - HEAD INJURY [None]
  - SUICIDE ATTEMPT [None]
  - SELF INJURIOUS BEHAVIOUR [None]
  - BORDERLINE PERSONALITY DISORDER [None]
  - ESSENTIAL HYPERTENSION [None]
  - ELECTROCARDIOGRAM QT PROLONGED [None]
  - PAIN [None]
  - RHABDOMYOLYSIS [None]
  - RENAL DISORDER [None]
  - OVERDOSE [None]
  - ULCER [None]
  - OSTEONECROSIS OF JAW [None]
  - HYPERLIPIDAEMIA [None]
  - DENTAL NECROSIS [None]
  - URETHRAL DISORDER [None]
  - MUSCULAR WEAKNESS [None]
  - GASTRIC CANCER [None]
